FAERS Safety Report 17901846 (Version 4)
Quarter: 2020Q4

REPORT INFORMATION
  Report Type: Report from Study
  Country: US (occurrence: US)
  Receive Date: 20200616
  Receipt Date: 20201125
  Transmission Date: 20210113
  Serious: Yes (Hospitalization, Other)
  Sender: FDA-Public Use
  Company Number: US-EISAI MEDICAL RESEARCH-EC-2020-075229

PATIENT
  Age: 62 Year
  Sex: Male
  Weight: 99.8 kg

DRUGS (17)
  1. LENVIMA [Suspect]
     Active Substance: LENVATINIB
     Route: 048
     Dates: start: 202007, end: 2020
  2. JUNEL FE 1/20 [Concomitant]
     Active Substance: ETHINYL ESTRADIOL\NORETHINDRONE ACETATE
  3. METFORMIN [Concomitant]
     Active Substance: METFORMIN HYDROCHLORIDE
  4. ALLOPURINOL. [Concomitant]
     Active Substance: ALLOPURINOL
  5. EMETROL [Concomitant]
     Active Substance: DEXTROSE\FRUCTOSE\PHOSPHORIC ACID
  6. AFINITOR [Concomitant]
     Active Substance: EVEROLIMUS
     Dates: end: 202011
  7. OMEPRAZOLE. [Concomitant]
     Active Substance: OMEPRAZOLE
  8. LIOTHYRONIN [Concomitant]
     Active Substance: LIOTHYRONINE SODIUM
  9. LENVIMA [Suspect]
     Active Substance: LENVATINIB
     Indication: RENAL CANCER
     Route: 048
     Dates: start: 20200526, end: 20200610
  10. AFINITOR [Concomitant]
     Active Substance: EVEROLIMUS
     Dates: start: 20201118
  11. ATORVASTATIN [Concomitant]
     Active Substance: ATORVASTATIN
  12. SYNTHROID [Concomitant]
     Active Substance: LEVOTHYROXINE SODIUM
  13. JANUVIA [Concomitant]
     Active Substance: SITAGLIPTIN PHOSPHATE
  14. ZOFRAN [Concomitant]
     Active Substance: ONDANSETRON HYDROCHLORIDE
  15. FISH OIL [Concomitant]
     Active Substance: FISH OIL
  16. VITAMIN B COMPLEX [Concomitant]
     Active Substance: CYANOCOBALAMIN\DEXPANTHENOL\NIACINAMIDE\PYRIDOXINE HYDROCHLORIDE\RIBOFLAVIN 5^-PHOSPHATE SODIUM\THIAMINE HYDROCHLORIDE\VITAMIN B COMPLEX
  17. LENVIMA [Suspect]
     Active Substance: LENVATINIB
     Dosage: GRADUALLY INCREASED TO 18MG
     Route: 048
     Dates: start: 2020, end: 202011

REACTIONS (17)
  - Rib fracture [Unknown]
  - Dehydration [Recovered/Resolved]
  - Diarrhoea [Recovered/Resolved]
  - Rotator cuff syndrome [Unknown]
  - Seizure [Unknown]
  - Decreased appetite [Recovered/Resolved]
  - Blood electrolytes decreased [Recovered/Resolved]
  - Weight decreased [Recovered/Resolved]
  - Urinary tract infection [Unknown]
  - Product blister packaging issue [Unknown]
  - Sluggishness [Recovered/Resolved]
  - Nausea [Recovered/Resolved]
  - Gastric disorder [Recovered/Resolved]
  - Body temperature increased [Unknown]
  - Headache [Not Recovered/Not Resolved]
  - Malaise [Recovered/Resolved]
  - Blood pressure increased [Recovering/Resolving]

NARRATIVE: CASE EVENT DATE: 2020
